FAERS Safety Report 15305539 (Version 1)
Quarter: 2018Q3

REPORT INFORMATION
  Report Type: Spontaneous
  Country: US (occurrence: US)
  Receive Date: 20180810
  Receipt Date: 20180810
  Transmission Date: 20181010
  Serious: Yes (Disabling, Other)
  Sender: FDA-Public Use
  Company Number: None

PATIENT
  Age: 72 Year
  Sex: Female
  Weight: 126 kg

DRUGS (6)
  1. VALSARTAN160MG TAB [Suspect]
     Active Substance: VALSARTAN
     Indication: HYPERTENSION
     Dosage: ?          QUANTITY:1 TABLET(S);?
     Route: 048
     Dates: start: 20080806, end: 20180806
  2. LASIX [Concomitant]
     Active Substance: FUROSEMIDE
  3. K+ [Concomitant]
     Active Substance: POTASSIUM
  4. TRAMADOL. [Concomitant]
     Active Substance: TRAMADOL
  5. IBUPROFEN. [Concomitant]
     Active Substance: IBUPROFEN
  6. LOSARTAN. [Concomitant]
     Active Substance: LOSARTAN

REACTIONS (8)
  - Asthenia [None]
  - Respiration abnormal [None]
  - Condition aggravated [None]
  - Confusional state [None]
  - Product use issue [None]
  - Fatigue [None]
  - Dysphonia [None]
  - Throat tightness [None]

NARRATIVE: CASE EVENT DATE: 20180810
